FAERS Safety Report 26177248 (Version 1)
Quarter: 2025Q4

REPORT INFORMATION
  Report Type: Spontaneous
  Country: EU (occurrence: EU)
  Receive Date: 20251219
  Receipt Date: 20251219
  Transmission Date: 20260118
  Serious: Yes (Hospitalization)
  Sender: TEVA
  Company Number: None

PATIENT
  Age: 53 Year
  Sex: Male
  Weight: 92.4 kg

DRUGS (2)
  1. IMATINIB [Suspect]
     Active Substance: IMATINIB
     Indication: B-cell type acute leukaemia
     Dosage: 1 PIECE ONCE A DAY, BRAND NAME NOT SPECIFIED
     Route: 048
     Dates: start: 20251121, end: 20251121
  2. DASATINIB [Suspect]
     Active Substance: DASATINIB
     Indication: B-cell type acute leukaemia
     Dosage: 1 PIECE ONCE A DAY, BRAND NAME NOT SPECIFIED
     Route: 048
     Dates: start: 20241108, end: 20251120

REACTIONS (2)
  - Pleural effusion [Recovering/Resolving]
  - Pericardial effusion [Recovering/Resolving]
